FAERS Safety Report 6577996-5 (Version None)
Quarter: 2010Q1

REPORT INFORMATION
  Report Type: 
  Country: None (occurrence: None)
  Receive Date: 20100211
  Receipt Date: 20100204
  Transmission Date: 20100710
  Serious: Yes (Death)
  Sender: FDA-Public Use
  Company Number: US-BRISTOL-MYERS SQUIBB COMPANY-14970362

PATIENT
  Age: 52 Year
  Sex: Male

DRUGS (11)
  1. CETUXIMAB [Suspect]
     Indication: TRANSITIONAL CELL CARCINOMA
     Route: 042
     Dates: start: 20091231, end: 20100128
  2. CISPLATIN [Suspect]
     Indication: TRANSITIONAL CELL CARCINOMA
     Route: 042
     Dates: start: 20091231, end: 20100128
  3. GEMCITABINE [Suspect]
     Indication: TRANSITIONAL CELL CARCINOMA
     Dosage: ON DAYS 1, 8 AND 15
     Route: 042
     Dates: start: 20091231, end: 20100128
  4. MOMETASONE FUROATE [Concomitant]
     Route: 061
  5. ASPIRIN [Concomitant]
     Route: 048
  6. DOXYCYCLINE [Concomitant]
     Route: 048
  7. APREPITANT [Concomitant]
     Dosage: 1 DF = 125-80MG
     Route: 048
  8. METOCLOPRAMIDE [Concomitant]
     Route: 048
  9. COMPAZINE [Concomitant]
     Dosage: Q6H
     Route: 048
  10. ZOFRAN [Concomitant]
     Route: 048
  11. ATIVAN [Concomitant]
     Route: 048

REACTIONS (1)
  - DEATH [None]
